FAERS Safety Report 8904589 (Version 3)
Quarter: 2013Q1

REPORT INFORMATION
  Report Type: Spontaneous
  Country: AU (occurrence: AU)
  Receive Date: 20121112
  Receipt Date: 20130326
  Transmission Date: 20140127
  Serious: Yes (Other)
  Sender: FDA-Public Use
  Company Number: AU-009507513-1210AUS014151

PATIENT
  Age: 51 Year
  Sex: Male
  Weight: 69 kg

DRUGS (8)
  1. BOCEPREVIR [Suspect]
     Indication: HEPATITIS C
     Dosage: 800 MG, Q8H
     Route: 048
  2. BOCEPREVIR [Suspect]
     Indication: HEPATIC CIRRHOSIS
  3. RIBAVIRIN [Suspect]
     Indication: HEPATITIS C
     Dosage: 1 G, QD
     Route: 048
  4. RIBAVIRIN [Suspect]
     Indication: HEPATIC CIRRHOSIS
  5. PEGASYS [Suspect]
     Indication: HEPATITIS C
     Dosage: 180 MICROGRAM, QW
     Route: 058
  6. PEGASYS [Suspect]
     Indication: HEPATIC CIRRHOSIS
  7. SUBOXONE [Concomitant]
     Dosage: UNK
     Dates: start: 2008
  8. CITALOPRAM [Concomitant]
     Indication: DEPRESSION

REACTIONS (2)
  - Viral load increased [Not Recovered/Not Resolved]
  - Depression [Not Recovered/Not Resolved]
